FAERS Safety Report 5151505-X (Version None)
Quarter: 2006Q4

REPORT INFORMATION
  Report Type: 
  Country: None (occurrence: None)
  Receive Date: 20061114
  Receipt Date: 20061114
  Transmission Date: 20070319
  Serious: Yes (Other)
  Sender: FDA-Public Use
  Company Number: None

PATIENT
  Age: 47 Year
  Sex: Male
  Weight: 107.0489 kg

DRUGS (2)
  1. EQUATE       500 MG   PERRIGO [Suspect]
     Indication: PAIN
     Dosage: 2 CAPLETS  6 HRS    PO
     Route: 048
     Dates: start: 20061101, end: 20061109
  2. EQUATE       500 MG   PERRIGO [Suspect]
     Indication: PYREXIA
     Dosage: 2 CAPLETS  6 HRS    PO
     Route: 048
     Dates: start: 20061101, end: 20061109

REACTIONS (4)
  - GASTROINTESTINAL PAIN [None]
  - MALAISE [None]
  - PHARMACEUTICAL PRODUCT COMPLAINT [None]
  - PYREXIA [None]
